FAERS Safety Report 7542801-7 (Version None)
Quarter: 2011Q2

REPORT INFORMATION
  Report Type: 
  Country: None (occurrence: None)
  Receive Date: 20110613
  Receipt Date: 20110602
  Transmission Date: 20111010
  Serious: Yes (Hospitalization)
  Sender: FDA-Public Use
  Company Number: US-ASTRAZENECA-2011SE34028

PATIENT
  Age: 74 Year
  Sex: Female

DRUGS (5)
  1. PULMICORT [Suspect]
     Indication: CHRONIC OBSTRUCTIVE PULMONARY DISEASE
     Dosage: 1 MG IN 2 ML BID
     Route: 055
     Dates: start: 20080101
  2. DUONEB [Concomitant]
  3. NEXIUM [Suspect]
     Indication: GASTRIC HAEMORRHAGE
     Route: 048
     Dates: start: 20010101
  4. NEXIUM [Suspect]
     Indication: GASTROOESOPHAGEAL REFLUX DISEASE
     Route: 048
     Dates: start: 20010101
  5. ALBUTEROL INHALER [Concomitant]
     Indication: ASTHMA

REACTIONS (4)
  - CEREBROVASCULAR ACCIDENT [None]
  - INCORRECT DRUG ADMINISTRATION DURATION [None]
  - RESPIRATORY DISTRESS [None]
  - DRUG DOSE OMISSION [None]
